FAERS Safety Report 13663217 (Version 1)
Quarter: 2017Q2

REPORT INFORMATION
  Report Type: Spontaneous
  Country: BR (occurrence: BR)
  Receive Date: 20170619
  Receipt Date: 20170619
  Transmission Date: 20170830
  Serious: Yes (Other)
  Sender: FDA-Public Use
  Company Number: BR-PFIZER INC-2017260349

PATIENT
  Sex: Male

DRUGS (1)
  1. SUTENT [Suspect]
     Active Substance: SUNITINIB MALATE
     Dosage: UNK

REACTIONS (5)
  - Neutropenia [Unknown]
  - Duodenitis [Unknown]
  - Haematochezia [Unknown]
  - Thrombocytopenia [Unknown]
  - Melaena [Unknown]
